FAERS Safety Report 5269838-5 (Version None)
Quarter: 2007Q1

REPORT INFORMATION
  Report Type: 
  Country: None (occurrence: None)
  Receive Date: 20070320
  Receipt Date: 20070315
  Transmission Date: 20070707
  Serious: Yes (Other)
  Sender: FDA-Public Use
  Company Number: US-GLAXOSMITHKLINE-A0635873A

PATIENT
  Age: 64 Year
  Sex: Female
  Weight: 68.2 kg

DRUGS (4)
  1. ADVAIR DISKUS 100/50 [Suspect]
     Indication: ASTHMA
     Dosage: 1PUFF TWICE PER DAY
     Route: 055
  2. SINGULAIR [Concomitant]
     Dosage: 10MG PER DAY
     Route: 048
     Dates: start: 19991101
  3. FLOMAX [Concomitant]
     Route: 048
     Dates: start: 19980101
  4. THYROID TAB [Concomitant]
     Route: 048

REACTIONS (6)
  - DISORIENTATION [None]
  - FAECAL INCONTINENCE [None]
  - GRAND MAL CONVULSION [None]
  - LOSS OF CONSCIOUSNESS [None]
  - POSTICTAL STATE [None]
  - URINARY INCONTINENCE [None]
